FAERS Safety Report 12801272 (Version 1)
Quarter: 2016Q4

REPORT INFORMATION
  Report Type: Report from Study
  Country: None (occurrence: GB)
  Receive Date: 20161003
  Receipt Date: 20161003
  Transmission Date: 20170207
  Serious: Yes (Life-Threatening, Hospitalization)
  Sender: FDA-Public Use
  Company Number: GB-BIOVITRUM-2015GB0396

PATIENT
  Age: 29 Year
  Sex: Male

DRUGS (17)
  1. ACICLOVIR [Concomitant]
     Active Substance: ACYCLOVIR
     Indication: PROPHYLAXIS
  2. DEXAMETHASONE. [Concomitant]
     Active Substance: DEXAMETHASONE
     Indication: PROPHYLAXIS
  3. VITAMIN K [Concomitant]
     Active Substance: PHYTONADIONE
     Indication: THROMBOSIS
     Route: 042
     Dates: start: 20140807, end: 20141002
  4. URSODEOXYCHOLIC ACID [Concomitant]
     Active Substance: URSODIOL
     Indication: PROPHYLAXIS
     Route: 048
     Dates: start: 20140808, end: 20140808
  5. KEPIVANCE [Suspect]
     Active Substance: PALIFERMIN
     Dosage: 5 MG DAY -9, DAY 0, DAY 2, DAY 4.
     Route: 042
     Dates: start: 20140806, end: 20140819
  6. DALTEPARIN [Concomitant]
     Active Substance: DALTEPARIN
     Indication: PROPHYLAXIS
     Route: 058
     Dates: start: 20140807, end: 20141002
  7. VITAMIN K [Concomitant]
     Active Substance: PHYTONADIONE
     Indication: PROPHYLAXIS
  8. ITRACONAZOLE. [Concomitant]
     Active Substance: ITRACONAZOLE
     Indication: ANTIFUNGAL PROPHYLAXIS
     Route: 042
     Dates: start: 20140807, end: 20141002
  9. CO-FUMAZOLE [Concomitant]
     Indication: ANTIFUNGAL PROPHYLAXIS
  10. DEXAMETHASONE. [Concomitant]
     Active Substance: DEXAMETHASONE
     Indication: TRANSPLANTATION COMPLICATION
     Route: 042
     Dates: start: 20140808, end: 20140808
  11. URSODEOXYCHOLIC ACID [Concomitant]
     Active Substance: URSODIOL
     Indication: LIVER INJURY
  12. ACICLOVIR [Concomitant]
     Active Substance: ACYCLOVIR
     Indication: HERPES VIRUS INFECTION
     Route: 048
     Dates: start: 20140807
  13. ONDANSETRON [Concomitant]
     Active Substance: ONDANSETRON
     Indication: PROPHYLAXIS OF NAUSEA AND VOMITING
     Route: 042
     Dates: start: 20140808, end: 20140808
  14. CO-FUMAZOLE [Concomitant]
     Indication: PNEUMOCYSTIS JIROVECII PNEUMONIA
     Route: 048
     Dates: start: 20140807, end: 20141002
  15. RANITIDINE. [Concomitant]
     Active Substance: RANITIDINE
     Indication: PROPHYLAXIS
     Route: 048
     Dates: start: 20140807, end: 20141002
  16. ETOPOSIDE. [Concomitant]
     Active Substance: ETOPOSIDE
     Indication: CHEMOTHERAPY
     Dosage: 1000 MILLIGRAM 24 HRS
     Route: 042
     Dates: start: 20140808, end: 20140808
  17. DALTEPARIN [Concomitant]
     Active Substance: DALTEPARIN
     Indication: THROMBOSIS

REACTIONS (5)
  - Skin infection [Recovered/Resolved]
  - Blister [None]
  - Rash erythematous [Recovered/Resolved]
  - Staphylococcal scalded skin syndrome [None]
  - Dermatitis exfoliative [Recovered/Resolved]

NARRATIVE: CASE EVENT DATE: 20140809
